FAERS Safety Report 15542483 (Version 4)
Quarter: 2019Q1

REPORT INFORMATION
  Report Type: Report from Study
  Country: EC (occurrence: EC)
  Receive Date: 20181023
  Receipt Date: 20190108
  Transmission Date: 20190417
  Serious: Yes (Death, Hospitalization)
  Sender: FDA-Public Use
  Company Number: EC-BAYER-2018-193356

PATIENT
  Age: 43 Year
  Sex: Male

DRUGS (1)
  1. NEXAVAR [Suspect]
     Active Substance: SORAFENIB
     Indication: POORLY DIFFERENTIATED THYROID CARCINOMA
     Dosage: 800 MG DAILY
     Route: 048
     Dates: start: 20180605

REACTIONS (3)
  - Neck pain [Not Recovered/Not Resolved]
  - Death [Fatal]
  - Inflammation [Not Recovered/Not Resolved]

NARRATIVE: CASE EVENT DATE: 20181011
